FAERS Safety Report 20871360 (Version 1)
Quarter: 2022Q2

REPORT INFORMATION
  Report Type: Spontaneous
  Country: US (occurrence: US)
  Receive Date: 20220525
  Receipt Date: 20220525
  Transmission Date: 20220720
  Serious: No
  Sender: FDA-Public Use
  Company Number: US-ALLERGAN-2123794US

PATIENT
  Age: 90 Year
  Sex: Male

DRUGS (1)
  1. FML FORTE [Suspect]
     Active Substance: FLUOROMETHOLONE
     Indication: Eye disorder
     Dosage: 1 GTT, QD
     Route: 047
     Dates: start: 20200312, end: 20210612

REACTIONS (2)
  - Product dose omission issue [Unknown]
  - Product delivery mechanism issue [Unknown]

NARRATIVE: CASE EVENT DATE: 20210612
